FAERS Safety Report 8957422 (Version 1)
Quarter: 2012Q4

REPORT INFORMATION
  Report Type: 
  Country: US (occurrence: US)
  Receive Date: 20121210
  Receipt Date: 20121210
  Transmission Date: 20130627
  Serious: No
  Sender: FDA-Public Use
  Company Number: US-ASTELLAS-2012US010604

PATIENT
  Sex: Male

DRUGS (7)
  1. XTANDI [Suspect]
     Indication: PRODUCT USED FOR UNKNOWN INDICATION
     Dosage: 160 mg, UID/QD
     Route: 048
     Dates: start: 201209
  2. XTANDI [Suspect]
     Dosage: 40 mg, qid
     Route: 048
     Dates: start: 201209
  3. MUCINEX [Suspect]
     Indication: SINUS DISORDER
     Dosage: 1 DF, UID/QD
     Route: 048
  4. MUCINEX [Suspect]
     Dosage: 1 DF, every three days
  5. UNKNOWN [Concomitant]
     Indication: MUSCLE RELAXANT THERAPY
     Dosage: UNK
     Route: 065
  6. UNKNOWN [Concomitant]
     Indication: PAIN IN EXTREMITY
     Dosage: UNK
     Route: 065
  7. UNKNOWN [Concomitant]
     Indication: BLADDER DISORDER
     Dosage: UNK
     Route: 065

REACTIONS (5)
  - Vision blurred [Unknown]
  - Increased upper airway secretion [Unknown]
  - Abdominal discomfort [Unknown]
  - Vomiting [Unknown]
  - Sinusitis [Unknown]
